FAERS Safety Report 9133706 (Version 3)
Quarter: 2013Q1

REPORT INFORMATION
  Report Type: Report from Study
  Country: US (occurrence: US)
  Receive Date: 20130302
  Receipt Date: 20130315
  Transmission Date: 20140127
  Serious: Yes (Death, Other)
  Sender: FDA-Public Use
  Company Number: US-US-EMD SERONO, INC.-7196818

PATIENT
  Age: 60 None
  Sex: Female

DRUGS (3)
  1. REBIF [Suspect]
     Indication: RELAPSING-REMITTING MULTIPLE SCLEROSIS
     Route: 058
     Dates: start: 20130108, end: 20130220
  2. REBIF [Suspect]
     Route: 058
     Dates: start: 20130220, end: 20130222
  3. OXCARBAZEPINE [Concomitant]
     Indication: CONVULSION

REACTIONS (6)
  - Completed suicide [Fatal]
  - Thermal burn [Fatal]
  - Abnormal behaviour [Unknown]
  - Fall [Unknown]
  - Sleep disorder [Unknown]
  - Influenza like illness [Unknown]
